FAERS Safety Report 6928039 (Version 5)
Quarter: 2014Q1

REPORT INFORMATION
  Report Type: Spontaneous
  Country: US (occurrence: US)
  Receive Date: 20090305
  Receipt Date: 20140219
  Transmission Date: 20141002
  Serious: Yes (Other)
  Sender: FDA-Public Use
  Company Number: PHEH2009US01877

PATIENT
  Sex: Female

DRUGS (6)
  1. ESTALIS COMBIPATCH (ESTRADIOL, NORETHISTERONE ACETATE) TRANS-THERAPEUTIC-SYSTEM [Suspect]
     Indication: MENOPAUSAL SYMPTOMS
     Dosage: UNK UKN, UNK
     Dates: start: 200811
  2. ESTALIS COMBIPATCH (ESTRADIOL, NORETHISTERONE ACETATE) TRANS-THERAPEUTIC-SYSTEM [Suspect]
     Dosage: 1 DF, QW
     Dates: start: 200811, end: 200903
  3. EFFEXOR [Concomitant]
     Dosage: UNK UKN, UNK
  4. LIPITOR [Concomitant]
     Dosage: UNK UKN, UNK
  5. VITAMIN D [Concomitant]
     Dosage: UNK UKN, UNK
  6. MULTI-VIT [Concomitant]
     Dosage: UNK UKN, UNK

REACTIONS (6)
  - Withdrawal syndrome [Unknown]
  - Vulvovaginal dryness [Unknown]
  - Breast pain [Unknown]
  - Hot flush [Unknown]
  - Insomnia [Unknown]
  - Herpes virus infection [Unknown]
